FAERS Safety Report 15098476 (Version 1)
Quarter: 2018Q2

REPORT INFORMATION
  Report Type: Spontaneous
  Country: US (occurrence: US)
  Receive Date: 20180611
  Receipt Date: 20180611
  Transmission Date: 20180711
  Serious: Yes (Other)
  Sender: FDA-Public Use
  Company Number: None

PATIENT
  Age: 8 Year
  Sex: Female
  Weight: 34.2 kg

DRUGS (3)
  1. MONTELUKAST SODIUM CHEWABLE TABLETS USP 5MG [Suspect]
     Active Substance: MONTELUKAST SODIUM
     Indication: MULTIPLE ALLERGIES
     Dosage: ?          QUANTITY:30 TABLET(S);?
     Route: 048
     Dates: start: 20180428, end: 20180609
  2. MONTELUKAST [Concomitant]
     Active Substance: MONTELUKAST SODIUM
  3. FLONASE [Concomitant]
     Active Substance: FLUTICASONE PROPIONATE

REACTIONS (7)
  - Fight in school [None]
  - Suicidal ideation [None]
  - Screaming [None]
  - Abnormal behaviour [None]
  - Nightmare [None]
  - Mood altered [None]
  - Aggression [None]

NARRATIVE: CASE EVENT DATE: 20180609
